FAERS Safety Report 9093599 (Version 2)
Quarter: 2013Q2

REPORT INFORMATION
  Report Type: Spontaneous
  Country: IE (occurrence: IE)
  Receive Date: 20130218
  Receipt Date: 20130415
  Transmission Date: 20140414
  Serious: Yes (Other)
  Sender: FDA-Public Use
  Company Number: IE-BAXTER-2013BAX005240

PATIENT
  Sex: Male

DRUGS (4)
  1. GLUCOSE 5% W/V INTRAVENOUS INFUSION BP, POLYOLEFIN/POLYAMIDE BAG [Suspect]
     Indication: MEDICATION DILUTION
     Dates: start: 20121022, end: 20121022
  2. OXALIPLATIN [Suspect]
     Indication: CHEMOTHERAPY
     Route: 065
     Dates: start: 20121022, end: 20121022
  3. FLUOROURACIL [Concomitant]
     Indication: PRODUCT USED FOR UNKNOWN INDICATION
     Route: 065
     Dates: start: 20121022, end: 20121022
  4. FOLINIC ACID [Concomitant]
     Indication: PRODUCT USED FOR UNKNOWN INDICATION
     Route: 065
     Dates: start: 20121022, end: 20121022

REACTIONS (4)
  - Headache [Recovered/Resolved]
  - Erythema [Recovered/Resolved]
  - Flushing [Recovered/Resolved]
  - Tachycardia [Recovered/Resolved]
